FAERS Safety Report 6009184-5 (Version None)
Quarter: 2008Q4

REPORT INFORMATION
  Report Type: 
  Country: None (occurrence: None)
  Receive Date: 20081217
  Receipt Date: 20081022
  Transmission Date: 20090506
  Serious: No
  Sender: FDA-Public Use
  Company Number: US-ABBOTT-08P-163-0458091-00

PATIENT
  Sex: Male
  Weight: 63.56 kg

DRUGS (7)
  1. HUMIRA [Suspect]
     Indication: COLITIS ULCERATIVE
     Route: 050
     Dates: start: 20080610
  2. HUMIRA [Suspect]
     Route: 050
     Dates: start: 20080708
  3. MESALAMINE [Concomitant]
     Indication: COLITIS ULCERATIVE
     Route: 048
  4. FISH OIL [Concomitant]
     Indication: COLITIS ULCERATIVE
     Route: 048
  5. LACTOBACILLUS ACIDOPHILUS [Concomitant]
     Indication: COLITIS ULCERATIVE
     Route: 048
  6. FOLIC ACID [Concomitant]
     Indication: COLITIS ULCERATIVE
     Route: 048
  7. AZATHIOPRINE [Concomitant]
     Indication: COLITIS ULCERATIVE
     Route: 048

REACTIONS (4)
  - DIZZINESS [None]
  - HYPERHIDROSIS [None]
  - NAUSEA [None]
  - SENSORY DISTURBANCE [None]
